FAERS Safety Report 6164267-4 (Version None)
Quarter: 2009Q2

REPORT INFORMATION
  Report Type: 
  Country: None (occurrence: None)
  Receive Date: 20090422
  Receipt Date: 20090414
  Transmission Date: 20091009
  Serious: No
  Sender: FDA-Public Use
  Company Number: US-B.I. PHARMACEUTICALS,INC./RIDGEFIELD-2009-BP-04774BP

PATIENT
  Age: 56 Year
  Sex: Female

DRUGS (1)
  1. COMBIVENT [Suspect]
     Indication: CHRONIC OBSTRUCTIVE PULMONARY DISEASE
     Dosage: 6PUF
     Route: 055
     Dates: start: 20060101, end: 20090411

REACTIONS (2)
  - PLEURITIC PAIN [None]
  - SPUTUM DISCOLOURED [None]
